FAERS Safety Report 17762769 (Version 4)
Quarter: 2020Q3

REPORT INFORMATION
  Report Type: Report from Study
  Country: US (occurrence: US)
  Receive Date: 20200508
  Receipt Date: 20200716
  Transmission Date: 20201102
  Serious: Yes (Other)
  Sender: FDA-Public Use
  Company Number: US-JNJFOC-20200500740

PATIENT
  Sex: Female

DRUGS (1)
  1. STELARA [Suspect]
     Active Substance: USTEKINUMAB
     Indication: CROHN^S DISEASE
     Route: 058

REACTIONS (5)
  - Sinusitis [Unknown]
  - Psoriasis [Unknown]
  - Therapeutic response shortened [Unknown]
  - Pruritus [Not Recovered/Not Resolved]
  - Bronchitis [Unknown]
